FAERS Safety Report 7293109-9 (Version None)
Quarter: 2011Q1

REPORT INFORMATION
  Report Type: 
  Country: None (occurrence: None)
  Receive Date: 20110215
  Receipt Date: 20110203
  Transmission Date: 20110831
  Serious: Yes (Other)
  Sender: FDA-Public Use
  Company Number: PT-ALLERGAN-1102131US

PATIENT
  Age: 78 Year
  Sex: Female

DRUGS (12)
  1. HYTACAND [Concomitant]
     Dosage: UNK
  2. TROSPIUM CHLORIDE [Suspect]
     Indication: URINARY INCONTINENCE
     Dosage: 20 MG, BID
     Route: 048
     Dates: start: 20110101
  3. ZANICOR [Concomitant]
     Dosage: 20 MG, QD
  4. CALCITE [Concomitant]
     Dosage: UNK
  5. NAPROXEN [Concomitant]
     Dosage: UNK
  6. DIAMICRON [Concomitant]
     Dosage: UNK
  7. CARTIA XT [Concomitant]
     Dosage: 100 MG, QD
  8. CORDARONE [Concomitant]
     Dosage: 200 MG, QD EXCEPT WEEKENDS
  9. SIMVASTATIN [Concomitant]
     Dosage: 20 MG, QD
  10. JANUVIA [Concomitant]
     Dosage: UNK
  11. STAGID [Concomitant]
     Dosage: UNK
  12. LEXOTAN [Concomitant]

REACTIONS (3)
  - DRY MOUTH [None]
  - DYSPHONIA [None]
  - BLOOD GLUCOSE INCREASED [None]
